FAERS Safety Report 5621985-1 (Version None)
Quarter: 2008Q1

REPORT INFORMATION
  Report Type: 
  Country: None (occurrence: None)
  Receive Date: 20080211
  Receipt Date: 20080206
  Transmission Date: 20080703
  Serious: Yes (Other)
  Sender: FDA-Public Use
  Company Number: D0055476A

PATIENT
  Sex: Male

DRUGS (2)
  1. ATMADISC [Suspect]
     Route: 055
  2. FLUTIDE [Suspect]
     Route: 055

REACTIONS (5)
  - ANGIOEDEMA [None]
  - ARTHRALGIA [None]
  - INDURATION [None]
  - TACHYCARDIA [None]
  - VASCULITIS [None]
